FAERS Safety Report 14453520 (Version 3)
Quarter: 2018Q3

REPORT INFORMATION
  Report Type: Spontaneous
  Country: FR (occurrence: FR)
  Receive Date: 20180129
  Receipt Date: 20180913
  Transmission Date: 20181010
  Serious: Yes (Other)
  Sender: FDA-Public Use
  Company Number: FR-CELGENEUS-FRA-20180106148

PATIENT
  Sex: Female

DRUGS (2)
  1. APRANAX [Suspect]
     Active Substance: NAPROXEN
     Indication: PROSTATIC SPECIFIC ANTIGEN
     Route: 065
  2. OTEZLA [Suspect]
     Active Substance: APREMILAST
     Indication: PSORIATIC ARTHROPATHY
     Route: 048
     Dates: start: 20170914

REACTIONS (1)
  - Hyperkalaemia [Recovered/Resolved]
